FAERS Safety Report 7377890-6 (Version None)
Quarter: 2011Q1

REPORT INFORMATION
  Report Type: 
  Country: None (occurrence: None)
  Receive Date: 20110328
  Receipt Date: 20110314
  Transmission Date: 20110831
  Serious: Yes (Hospitalization)
  Sender: FDA-Public Use
  Company Number: US-ACTELION-A-US2011-45440

PATIENT

DRUGS (3)
  1. TRACLEER [Suspect]
     Indication: PULMONARY ARTERIAL HYPERTENSION
     Dosage: UNK
     Route: 048
     Dates: start: 20100420
  2. TADALAFIL [Concomitant]
  3. COUMADIN [Concomitant]

REACTIONS (8)
  - HYPOTENSION [None]
  - DYSPNOEA [None]
  - OEDEMA PERIPHERAL [None]
  - DISEASE PROGRESSION [None]
  - PNEUMONIA [None]
  - CARDIAC OUTPUT DECREASED [None]
  - PYREXIA [None]
  - PULMONARY ARTERIAL HYPERTENSION [None]
